FAERS Safety Report 7883920-5 (Version None)
Quarter: 2011Q4

REPORT INFORMATION
  Report Type: 
  Country: None (occurrence: None)
  Receive Date: 20111102
  Receipt Date: 20111021
  Transmission Date: 20120403
  Serious: No
  Sender: FDA-Public Use
  Company Number: US-JNJFOC-20111010103

PATIENT
  Sex: Female

DRUGS (3)
  1. INVEGA SUSTENNA [Suspect]
     Indication: SCHIZOPHRENIA
     Route: 030
     Dates: start: 20111010, end: 20111010
  2. KEFLEX [Concomitant]
     Indication: EAR PAIN
     Route: 048
     Dates: start: 20111001
  3. IBUPROFEN [Concomitant]
     Indication: EAR PAIN
     Route: 048
     Dates: start: 20111001

REACTIONS (3)
  - URTICARIA [None]
  - EAR PAIN [None]
  - OROPHARYNGEAL PAIN [None]
